FAERS Safety Report 18064015 (Version 1)
Quarter: 2020Q3

REPORT INFORMATION
  Report Type: Report from Study
  Country: US (occurrence: US)
  Receive Date: 20200724
  Receipt Date: 20200724
  Transmission Date: 20201103
  Serious: Yes (Hospitalization, Other)
  Sender: FDA-Public Use
  Company Number: US-HBP-2020US020863

PATIENT
  Sex: Male

DRUGS (7)
  1. CLONIDINE. [Concomitant]
     Active Substance: CLONIDINE
  2. ASPIRIN                            /00002701/ [Concomitant]
     Active Substance: ASPIRIN
  3. COMPLETE MULTIVITAMIN [Concomitant]
     Active Substance: VITAMINS
  4. METOPROLOL. [Concomitant]
     Active Substance: METOPROLOL
  5. ZESTRIL [Concomitant]
     Active Substance: LISINOPRIL
  6. LEXAPRO [Concomitant]
     Active Substance: ESCITALOPRAM OXALATE
  7. VALCHLOR [Suspect]
     Active Substance: MECHLORETHAMINE
     Indication: CUTANEOUS T-CELL LYMPHOMA
     Dosage: THIN FILM, QD
     Route: 061
     Dates: start: 20131227

REACTIONS (4)
  - Intentional dose omission [Recovered/Resolved]
  - Skin ulcer [Unknown]
  - Toe amputation [Unknown]
  - Neoplasm skin [Unknown]
